FAERS Safety Report 7413052-1 (Version None)
Quarter: 2011Q2

REPORT INFORMATION
  Report Type: 
  Country: None (occurrence: None)
  Receive Date: 20110408
  Receipt Date: 20110408
  Transmission Date: 20111010
  Serious: Yes (Hospitalization)
  Sender: FDA-Public Use
  Company Number: None

PATIENT
  Age: 65 Year
  Sex: Male

DRUGS (10)
  1. VITAMIN C INTRAVENOUS INFUSION [Suspect]
     Indication: PANCREATIC CARCINOMA METASTATIC
     Dosage: 100G/INFUSION
     Dates: start: 20110316, end: 20110318
  2. REGLAN [Concomitant]
  3. ERLOTIINIB [Concomitant]
  4. NEXIUM [Concomitant]
  5. GEMCITABINE [Concomitant]
  6. OXYCODONE HCL [Concomitant]
  7. REMERON [Concomitant]
  8. CREON [Concomitant]
  9. WELLBUTRIN [Concomitant]
  10. ZOFRAN [Concomitant]

REACTIONS (4)
  - ASCITES [None]
  - ILEUS [None]
  - TREATMENT NONCOMPLIANCE [None]
  - DISEASE PROGRESSION [None]
